FAERS Safety Report 18384652 (Version 1)
Quarter: 2020Q4

REPORT INFORMATION
  Report Type: Spontaneous
  Country: SG (occurrence: SG)
  Receive Date: 20201014
  Receipt Date: 20201014
  Transmission Date: 20210114
  Serious: Yes (Other)
  Sender: FDA-Public Use
  Company Number: NVSC2020SG273007

PATIENT
  Age: 58 Year
  Sex: Female

DRUGS (3)
  1. ELTROMBOPAG [Suspect]
     Active Substance: ELTROMBOPAG
     Indication: IMMUNE THROMBOCYTOPENIA
     Dosage: 75 MG, QD (6 MONTHS)
     Route: 065
     Dates: start: 20180426
  2. CYCLOSPORINE. [Suspect]
     Active Substance: CYCLOSPORINE
     Indication: PRODUCT USED FOR UNKNOWN INDICATION
     Dosage: UNK (TROUGH 200-400 NG/ML)
     Route: 065
     Dates: start: 20180426
  3. ACICLOVIR [Suspect]
     Active Substance: ACYCLOVIR
     Indication: PRODUCT USED FOR UNKNOWN INDICATION
     Dosage: 400 MG, BID
     Route: 065

REACTIONS (6)
  - White blood cell count decreased [Unknown]
  - Bone marrow myelogram abnormal [Unknown]
  - Incorrect dose administered [Unknown]
  - Platelet count decreased [Unknown]
  - Neutrophil count abnormal [Unknown]
  - Haemoglobin decreased [Unknown]
